FAERS Safety Report 4895146-8 (Version None)
Quarter: 2005Q4

REPORT INFORMATION
  Report Type: 
  Country: None (occurrence: None)
  Receive Date: 20051230
  Receipt Date: 20051212
  Transmission Date: 20060501
  Serious: Yes (Disabling)
  Sender: FDA-Public Use
  Company Number: 422323

PATIENT
  Age: 49 Year
  Sex: Male
  Weight: 90.7 kg

DRUGS (3)
  1. PEGASYS [Suspect]
     Indication: HEPATITIS C VIRUS
     Dosage: 1 PER WEEK SUBCUTANEOUS
     Route: 058
     Dates: start: 20040415, end: 20040826
  2. COPEGUS [Suspect]
     Indication: HEPATITIS C VIRUS
     Dosage: 600 MG 3 PER DAY ORAL
     Route: 048
     Dates: start: 20040415, end: 20040826
  3. MARIJUANA (CANNABIS) [Concomitant]

REACTIONS (31)
  - ABDOMINAL PAIN UPPER [None]
  - AFFECT LABILITY [None]
  - ALLODYNIA [None]
  - BACK PAIN [None]
  - BALANCE DISORDER [None]
  - BLOOD TRIGLYCERIDES INCREASED [None]
  - CONSTIPATION [None]
  - COORDINATION ABNORMAL [None]
  - DIZZINESS [None]
  - DYSPHAGIA [None]
  - FATIGUE [None]
  - HAEMATOCRIT DECREASED [None]
  - HEADACHE [None]
  - HYPOAESTHESIA [None]
  - MAJOR DEPRESSION [None]
  - MEMORY IMPAIRMENT [None]
  - MUSCLE CONTRACTIONS INVOLUNTARY [None]
  - MUSCLE SPASMS [None]
  - NAUSEA [None]
  - NEURALGIA [None]
  - NEUROPATHY PERIPHERAL [None]
  - PAIN [None]
  - PLATELET COUNT DECREASED [None]
  - RED BLOOD CELL COUNT DECREASED [None]
  - RENAL CYST [None]
  - SENSORY LOSS [None]
  - SPEECH DISORDER [None]
  - TINNITUS [None]
  - VISION BLURRED [None]
  - VOMITING [None]
  - WHITE BLOOD CELL COUNT DECREASED [None]
